FAERS Safety Report 5682148-7 (Version None)
Quarter: 2008Q1

REPORT INFORMATION
  Report Type: 
  Country: None (occurrence: None)
  Receive Date: 20080327
  Receipt Date: 20080320
  Transmission Date: 20080703
  Serious: Yes (Life-Threatening, Hospitalization, Disabling, Other)
  Sender: FDA-Public Use
  Company Number: GB-RANBAXY-2008RR-13835

PATIENT

DRUGS (10)
  1. ATORVASTATIN RANBAXY 20MG [Suspect]
     Indication: HYPERCHOLESTEROLAEMIA
     Dosage: 40 MG, QD
     Dates: start: 20041108, end: 20060120
  2. ATORVASTATIN RANBAXY 20MG [Suspect]
     Dosage: 80 MG, QD
     Dates: start: 20040119, end: 20041108
  3. CLARITHROMYCIN [Suspect]
  4. ASPIRIN [Concomitant]
     Dosage: 75 MG, QD
     Dates: start: 20040401
  5. BISOPROLOL FUMARATE [Concomitant]
     Dosage: 2.5 MG, QD
     Dates: start: 20040701
  6. CLOPIDOGREL [Concomitant]
     Dosage: 75 MG, UNK
     Dates: start: 20041106, end: 20060122
  7. LANSOPRAZOLE [Concomitant]
     Dosage: 15 MG, QD
     Dates: start: 20040701
  8. NICORANDIL [Concomitant]
     Dosage: 20 MG, BID
     Dates: start: 20040701
  9. PENICILLIN V [Concomitant]
     Indication: RESPIRATORY TRACT INFECTION
     Dosage: 250 MG, QID
     Dates: start: 20051201, end: 20051201
  10. RAMIPRIL [Concomitant]
     Dosage: 10 MG, QD
     Dates: start: 20040701, end: 20060122

REACTIONS (16)
  - ABASIA [None]
  - ACUTE MYOCARDIAL INFARCTION [None]
  - ANOREXIA [None]
  - ASTHENIA [None]
  - BEDRIDDEN [None]
  - DRUG INTERACTION [None]
  - INFLUENZA LIKE ILLNESS [None]
  - LIVER FUNCTION TEST ABNORMAL [None]
  - LOWER RESPIRATORY TRACT INFECTION [None]
  - MYALGIA [None]
  - MYOCARDIAL INFARCTION [None]
  - MYOPATHY [None]
  - RENAL FAILURE ACUTE [None]
  - RHABDOMYOLYSIS [None]
  - TENDERNESS [None]
  - VENTRICULAR DYSFUNCTION [None]
